FAERS Safety Report 5084349-8 (Version None)
Quarter: 2006Q3

REPORT INFORMATION
  Report Type: 
  Country: None (occurrence: None)
  Receive Date: 20060817
  Receipt Date: 20060817
  Transmission Date: 20061208
  Serious: Yes (Life-Threatening)
  Sender: FDA-Public Use
  Company Number: None

PATIENT
  Age: 69 Year
  Sex: Male
  Weight: 114.76 kg

DRUGS (15)
  1. ETANERCEPT, 50MG QW, AMGEN [Suspect]
     Indication: PSORIATIC ARTHROPATHY
     Dosage: 50 MG QW SUBQ
     Route: 058
     Dates: start: 19980101
  2. ETANERCEPT, 50MG QW, AMGEN [Suspect]
     Indication: PSORIATIC ARTHROPATHY
     Dosage: 50 MG QW SUBQ
     Route: 058
     Dates: start: 20060801
  3. ALTACE [Concomitant]
  4. ASPIRIN [Concomitant]
  5. CELEBREX [Concomitant]
  6. GLUCOSAMINE [Concomitant]
  7. HYTRIN [Concomitant]
  8. LASIX [Concomitant]
  9. LOPID [Concomitant]
  10. MULTIVITAMIN [Concomitant]
  11. NORVASC [Concomitant]
  12. PRILOSEC [Concomitant]
  13. VITAMIN D [Concomitant]
  14. ZOCOR [Concomitant]
  15. ISOSORBIDE MONONITRATE [Concomitant]

REACTIONS (1)
  - LYMPHOMA [None]
